FAERS Safety Report 14015925 (Version 1)
Quarter: 2017Q3

REPORT INFORMATION
  Report Type: Report from Study
  Country: US (occurrence: US)
  Receive Date: 20170927
  Receipt Date: 20170927
  Transmission Date: 20171128
  Serious: Yes (Hospitalization)
  Sender: FDA-Public Use
  Company Number: US-SEATTLE GENETICS-2017SGN02215

PATIENT
  Age: 16 Year
  Sex: Female
  Weight: 71.3 kg

DRUGS (14)
  1. DOXORUBICIN [Suspect]
     Active Substance: DOXORUBICIN
     Indication: HODGKIN^S DISEASE
     Dosage: 25 MG/M2, QCYCLE
     Route: 040
     Dates: end: 20170809
  2. PROTONIX                           /00661201/ [Concomitant]
     Active Substance: OMEPRAZOLE
  3. PREDNISONE. [Suspect]
     Active Substance: PREDNISONE
     Indication: HODGKIN^S DISEASE
     Dosage: 20 MG/M2, QCYCLE
     Route: 048
     Dates: end: 20170815
  4. NUTRIENTS NOS [Concomitant]
     Active Substance: UNSPECIFIED INGREDIENT
  5. BRENTUXIMAB VEDOTIN [Suspect]
     Active Substance: BRENTUXIMAB VEDOTIN
     Indication: HODGKIN^S DISEASE
     Dosage: 1.8 MG/KG, QCYCLE
     Route: 042
     Dates: start: 20170809, end: 20170809
  6. VINCRISTINE [Suspect]
     Active Substance: VINCRISTINE
     Indication: HODGKIN^S DISEASE
     Dosage: 1.4 MG/M2, QCYCLE
     Route: 042
     Dates: end: 20170816
  7. MINERAL OIL. [Concomitant]
     Active Substance: MINERAL OIL
     Route: 054
  8. POTASSIUM PHOSPHATE                /00493501/ [Concomitant]
     Active Substance: POTASSIUM PHOSPHATE, DIBASIC
  9. SENNA                              /00142201/ [Concomitant]
     Active Substance: SENNA LEAF
  10. CYCLOPHOSPHAMIDE. [Suspect]
     Active Substance: CYCLOPHOSPHAMIDE
     Indication: HODGKIN^S DISEASE
     Dosage: 600 MG/M2, QCYCLE
     Route: 042
     Dates: end: 20170810
  11. MIRALAX [Concomitant]
     Active Substance: POLYETHYLENE GLYCOL 3350
  12. MELATONIN [Concomitant]
     Active Substance: MELATONIN
  13. ETOPOSIDE. [Suspect]
     Active Substance: ETOPOSIDE
     Indication: HODGKIN^S DISEASE
     Dosage: 125 MG/M2, QCYCLE
     Route: 042
     Dates: end: 20170811
  14. FAT EMULSION NOS [Concomitant]
     Active Substance: EGG PHOSPHOLIPIDS\SAFFLOWER OIL\SOYBEAN OIL

REACTIONS (1)
  - Hypophosphataemia [Recovered/Resolved]

NARRATIVE: CASE EVENT DATE: 20170824
